FAERS Safety Report 9969170 (Version 5)
Quarter: 2014Q2

REPORT INFORMATION
  Report Type: Report from Study
  Country: JP (occurrence: JP)
  Receive Date: 20140306
  Receipt Date: 20140523
  Transmission Date: 20141212
  Serious: Yes (Hospitalization)
  Sender: FDA-Public Use
  Company Number: JP-ROCHE-1356168

PATIENT
  Age: 69 Year
  Sex: Male
  Weight: 53 kg

DRUGS (42)
  1. TRASTUZUMAB [Suspect]
     Indication: HER-2 POSITIVE GASTRIC CANCER
     Dosage: LOADING DOSE
     Route: 042
     Dates: start: 20131210, end: 20140107
  2. TRASTUZUMAB [Suspect]
     Dosage: MOST RECENT DOSE WAS TAKEN ON 07/JAN/2014.
     Route: 042
  3. CAPECITABINE [Suspect]
     Indication: HER-2 POSITIVE GASTRIC CANCER
     Dosage: MOST RECENT DOSE WAS TAKEN ON 21/JAN/2014.
     Route: 048
     Dates: start: 20131210
  4. CISPLATIN [Suspect]
     Indication: HER-2 POSITIVE GASTRIC CANCER
     Dosage: MOST RECENT DOSE WAS TAKEN ON 07/JAN/2014.
     Route: 042
     Dates: start: 20131210
  5. CISPLATIN [Suspect]
     Route: 042
  6. NEXIUM [Concomitant]
     Indication: GASTRITIS
     Route: 048
     Dates: start: 201310
  7. GASMOTIN [Concomitant]
     Indication: GASTRITIS
     Route: 048
     Dates: start: 20131122
  8. PROEMEND [Concomitant]
     Indication: NAUSEA
     Route: 042
     Dates: start: 20131210
  9. ALOXI [Concomitant]
     Indication: NAUSEA
     Route: 042
     Dates: start: 20131210
  10. DEXART [Concomitant]
     Indication: NAUSEA
     Route: 042
     Dates: start: 20131210
  11. DEXART [Concomitant]
     Indication: NAUSEA
     Route: 042
     Dates: start: 20131211
  12. MANNITOL [Concomitant]
     Route: 042
     Dates: start: 20131210
  13. TAMSULOSIN HYDROCHLORIDE [Concomitant]
     Indication: BENIGN PROSTATIC HYPERPLASIA
     Route: 048
     Dates: start: 20131224, end: 20140317
  14. SENNOSIDE [Concomitant]
     Indication: CONSTIPATION
     Route: 048
     Dates: start: 20131227, end: 20140123
  15. SENNOSIDE [Concomitant]
     Indication: CONSTIPATION
     Route: 048
     Dates: start: 20140205, end: 20140205
  16. FUROSEMIDE [Concomitant]
     Indication: OEDEMA
     Route: 042
     Dates: start: 20140108, end: 20140110
  17. SOLACET F [Concomitant]
     Indication: CREATININE RENAL CLEARANCE DECREASED
     Route: 042
     Dates: start: 20140110, end: 20140114
  18. SOLACET F [Concomitant]
     Indication: PYLORIC STENOSIS
     Dosage: SELECT IF ONGOING=NO
     Route: 042
     Dates: start: 20140205, end: 20140205
  19. SOLACET F [Concomitant]
     Indication: PYLORIC STENOSIS
     Route: 042
     Dates: start: 20140206, end: 20140213
  20. BROTIZOLAM [Concomitant]
     Indication: INSOMNIA
     Route: 048
     Dates: start: 20140106, end: 20140113
  21. PRIMPERAN [Concomitant]
     Indication: NAUSEA
     Route: 048
     Dates: start: 20140108, end: 20140112
  22. COLAC (JAPAN) [Concomitant]
     Indication: CONSTIPATION
     Route: 065
     Dates: start: 20140110, end: 20140110
  23. SODIUM PICOSULFATE [Concomitant]
     Indication: CONSTIPATION
     Route: 048
     Dates: start: 20140110, end: 20140110
  24. ZOLPIDEM TARTRATE [Concomitant]
     Indication: INSOMNIA
     Route: 048
     Dates: start: 20140113, end: 20140113
  25. ZOLPIDEM TARTRATE [Concomitant]
     Indication: INSOMNIA
     Route: 048
     Dates: start: 20140221, end: 20140221
  26. CEFMETAZOLE SODIUM [Concomitant]
     Indication: PNEUMONIA ASPIRATION
     Route: 042
     Dates: start: 20140212, end: 20140212
  27. OMEPRAZOLE [Concomitant]
     Indication: PNEUMONIA ASPIRATION
     Route: 042
     Dates: start: 20140210, end: 20140210
  28. OMEPRAZOLE [Concomitant]
     Indication: PNEUMONIA ASPIRATION
     Route: 042
     Dates: start: 20140211, end: 20140214
  29. UNASYN (JAPAN) [Concomitant]
     Indication: PNEUMONIA ASPIRATION
     Route: 042
     Dates: start: 20140212, end: 20140212
  30. UNASYN (JAPAN) [Concomitant]
     Indication: PNEUMONIA ASPIRATION
     Route: 042
     Dates: start: 20140213, end: 20140216
  31. UNASYN (JAPAN) [Concomitant]
     Indication: PNEUMONIA ASPIRATION
     Route: 042
     Dates: start: 20140217, end: 20140217
  32. CLINDAMYCIN [Concomitant]
     Indication: PNEUMONIA ASPIRATION
     Route: 042
     Dates: start: 20140212, end: 20140212
  33. CLINDAMYCIN [Concomitant]
     Indication: PNEUMONIA ASPIRATION
     Route: 042
     Dates: start: 20140213, end: 20140216
  34. CLINDAMYCIN [Concomitant]
     Indication: PNEUMONIA ASPIRATION
     Route: 042
     Dates: start: 20140217, end: 20140217
  35. DEXALTIN [Concomitant]
     Indication: CHEILITIS
     Route: 061
     Dates: start: 20140207, end: 20140214
  36. XYLOCAINE [Concomitant]
     Indication: ANAESTHESIA
     Route: 048
     Dates: start: 20140210, end: 20140210
  37. PENTAGIN [Concomitant]
     Indication: ANAESTHESIA
     Route: 042
     Dates: start: 20140210, end: 20140210
  38. MIDAZOLAM [Concomitant]
     Indication: ANAESTHESIA
     Route: 042
     Dates: start: 20140210, end: 20140210
  39. GASCON [Concomitant]
     Indication: PREMEDICATION
     Route: 048
     Dates: start: 20140210, end: 20140210
  40. ANEXATE [Concomitant]
     Route: 042
     Dates: start: 20140210, end: 20140210
  41. GASTROGRAFIN [Concomitant]
     Indication: X-RAY
     Route: 048
     Dates: start: 20140210, end: 20140210
  42. PERTUZUMAB [Suspect]
     Indication: HER-2 POSITIVE GASTRIC CANCER
     Dosage: MOST RECENT DOSE WAS TAKEN ON 07/JAN/2014.
     Route: 042
     Dates: start: 20131210

REACTIONS (1)
  - Obstruction gastric [Recovered/Resolved]
